FAERS Safety Report 4540181-2 (Version None)
Quarter: 2004Q4

REPORT INFORMATION
  Report Type: 
  Country: None (occurrence: None)
  Receive Date: 20041222
  Receipt Date: 20041213
  Transmission Date: 20050328
  Serious: Yes (Death)
  Sender: FDA-Public Use
  Company Number: CIP04002429

PATIENT
  Age: 72 Year
  Sex: Female
  Weight: 60 kg

DRUGS (5)
  1. BENET(RISEDRONATE SODIUM) TABLET, 2.5MG [Suspect]
     Indication: OSTEOPOROSIS
     Dosage: SEE IMAGE
     Route: 048
     Dates: start: 20030527, end: 20040112
  2. BENET(RISEDRONATE SODIUM) TABLET, 2.5MG [Suspect]
     Indication: OSTEOPOROSIS
     Dosage: SEE IMAGE
     Route: 048
     Dates: start: 20040119, end: 20041107
  3. LORCAM (LORNOXICAM) [Concomitant]
  4. TIZANIDINE HCL [Concomitant]
  5. TEPRENONE (TEPRENONE) [Concomitant]

REACTIONS (7)
  - ABDOMINAL DISTENSION [None]
  - ACUTE MYOCARDIAL INFARCTION [None]
  - CARDIO-RESPIRATORY ARREST [None]
  - CORONARY ARTERY EMBOLISM [None]
  - FEELING ABNORMAL [None]
  - MYOCARDIAL ISCHAEMIA [None]
  - SUDDEN DEATH [None]
